FAERS Safety Report 5511424-3 (Version None)
Quarter: 2007Q4

REPORT INFORMATION
  Report Type: 
  Country: None (occurrence: None)
  Receive Date: 20071109
  Receipt Date: 20071106
  Transmission Date: 20080405
  Serious: Yes (Death)
  Sender: FDA-Public Use
  Company Number: US-JNJFOC-20071101858

PATIENT
  Age: 77 Year
  Sex: Male

DRUGS (4)
  1. EXTRA STRENGTH TYLENOL [Suspect]
  2. EXTRA STRENGTH TYLENOL [Suspect]
     Indication: PAIN
     Dosage: UNKNOWN
  3. VICODIN [Suspect]
     Indication: PAIN
     Dosage: UNKNOWN
  4. CHEMOTHERAPY [Concomitant]

REACTIONS (2)
  - DRUG ADMINISTRATION ERROR [None]
  - HEPATOTOXICITY [None]
